FAERS Safety Report 4762884-7 (Version None)
Quarter: 2005Q3

REPORT INFORMATION
  Report Type: 
  Country: None (occurrence: None)
  Receive Date: 20050907
  Receipt Date: 20050831
  Transmission Date: 20060218
  Serious: Yes (Death, Other)
  Sender: FDA-Public Use
  Company Number: PHBS2005BR12859

PATIENT
  Age: 63 Year
  Sex: Female

DRUGS (10)
  1. TAXOL [Concomitant]
     Route: 065
  2. FLUOROURACIL [Concomitant]
     Route: 065
  3. ENDOXAN [Concomitant]
     Route: 065
  4. ADRIAMYCIN PFS [Concomitant]
     Route: 065
  5. CAMPTOSAR [Concomitant]
     Route: 065
  6. CARBOPLATIN [Concomitant]
     Route: 065
  7. GEMZAR [Concomitant]
     Route: 065
  8. TAXOTERE [Concomitant]
     Route: 065
  9. OXALIPLATIN [Concomitant]
     Route: 065
  10. ZOMETA [Suspect]
     Indication: METASTASES TO BONE
     Dosage: 4 MG, QMO
     Dates: start: 20020521, end: 20041130

REACTIONS (11)
  - ASEPTIC NECROSIS BONE [None]
  - BONE DISORDER [None]
  - DENTAL PROSTHESIS PLACEMENT [None]
  - FISTULA [None]
  - GINGIVAL PAIN [None]
  - MALIGNANT NEOPLASM PROGRESSION [None]
  - METASTASES TO LIVER [None]
  - MUCOSAL INFLAMMATION [None]
  - PURULENT DISCHARGE [None]
  - TOOTH EXTRACTION [None]
  - WOUND DEBRIDEMENT [None]
